FAERS Safety Report 5987138-2 (Version None)
Quarter: 2008Q4

REPORT INFORMATION
  Report Type: 
  Country: None (occurrence: None)
  Receive Date: 20081209
  Receipt Date: 20081130
  Transmission Date: 20090506
  Serious: Yes (Other)
  Sender: FDA-Public Use
  Company Number: US-JNJFOC-20081201243

PATIENT
  Age: 36 Year
  Sex: Female

DRUGS (4)
  1. TYLENOL (CAPLET) [Suspect]
  2. TYLENOL (CAPLET) [Suspect]
     Indication: HEADACHE
     Dosage: 2000-3000 MG A DAY
  3. EXCEDRIN [Suspect]
     Indication: HEADACHE
  4. ACETAMINOPHEN CONTAINING PRODUCTS [Suspect]
     Indication: HEADACHE

REACTIONS (4)
  - ABDOMINAL PAIN [None]
  - ANOREXIA [None]
  - HEPATOMEGALY [None]
  - LIVER FUNCTION TEST ABNORMAL [None]
